FAERS Safety Report 6208304-7 (Version None)
Quarter: 2009Q2

REPORT INFORMATION
  Report Type: 
  Country: None (occurrence: None)
  Receive Date: 20090522
  Receipt Date: 20090511
  Transmission Date: 20091009
  Serious: Yes (Life-Threatening, Hospitalization)
  Sender: FDA-Public Use
  Company Number: 2009AP001936

PATIENT
  Age: 37 Year
  Sex: Female

DRUGS (7)
  1. CARBAMAZEPINE [Suspect]
     Indication: NECK PAIN
     Dosage: QD PO
     Route: 048
     Dates: start: 20090218, end: 20090303
  2. ADVIL [Suspect]
     Indication: VIRAL INFECTION
     Dosage: PO
     Route: 048
     Dates: start: 20090228, end: 20090303
  3. ASPIRIN [Concomitant]
  4. ACETAMINOPHEN [Concomitant]
  5. MORCLOFONE (MORCLOFONE) [Concomitant]
  6. NEOMYCIN SULFATE [Concomitant]
  7. POLYMYXIN B SULFATE (POLYMYXIN B SULFATE) [Concomitant]

REACTIONS (11)
  - BRONCHOPNEUMONIA [None]
  - DRUG ERUPTION [None]
  - ESCHERICHIA BACTERAEMIA [None]
  - HYPOPHOSPHATAEMIA [None]
  - INFLUENZA [None]
  - PSEUDOMONAL BACTERAEMIA [None]
  - RESPIRATORY ACIDOSIS [None]
  - RESPIRATORY FAILURE [None]
  - RHABDOMYOLYSIS [None]
  - STAPHYLOCOCCAL BACTERAEMIA [None]
  - TOXIC EPIDERMAL NECROLYSIS [None]
